FAERS Safety Report 6097984-5 (Version None)
Quarter: 2009Q1

REPORT INFORMATION
  Report Type: 
  Country: None (occurrence: None)
  Receive Date: 20090227
  Receipt Date: 20090220
  Transmission Date: 20090719
  Serious: Yes (Other)
  Sender: FDA-Public Use
  Company Number: US-SANOFI-SYNTHELABO-A03200900775

PATIENT
  Age: 68 Year
  Sex: Female

DRUGS (1)
  1. PLAVIX [Suspect]
     Indication: PLATELET DISORDER
     Route: 048

REACTIONS (8)
  - CONFUSIONAL STATE [None]
  - CONVULSION [None]
  - HEAD DISCOMFORT [None]
  - HYPOAESTHESIA [None]
  - MEMORY IMPAIRMENT [None]
  - MUSCULAR WEAKNESS [None]
  - TINNITUS [None]
  - VISUAL ACUITY REDUCED [None]
